FAERS Safety Report 19164114 (Version 3)
Quarter: 2021Q2

REPORT INFORMATION
  Report Type: Spontaneous
  Country: SE (occurrence: SE)
  Receive Date: 20210421
  Receipt Date: 20210514
  Transmission Date: 20210717
  Serious: Yes (Other)
  Sender: FDA-Public Use
  Company Number: SE-BAYER-2021-122367

PATIENT
  Sex: Female

DRUGS (1)
  1. KYLEENA [Suspect]
     Active Substance: LEVONORGESTREL
     Dosage: 17.5  ?G PER DAY CONTINUOUSLY
     Route: 015
     Dates: start: 20191217, end: 20210408

REACTIONS (11)
  - Syncope [None]
  - Head injury [None]
  - Rash [None]
  - Aggression [None]
  - Dizziness exertional [None]
  - Abdominal distension [Recovering/Resolving]
  - Malaise [Recovered/Resolved]
  - Swelling face [Recovered/Resolved]
  - Weight increased [None]
  - Fallopian tube cyst [Recovered/Resolved]
  - Mood swings [None]

NARRATIVE: CASE EVENT DATE: 20191227
